FAERS Safety Report 10051815 (Version 1)
Quarter: 2014Q2

REPORT INFORMATION
  Report Type: Spontaneous
  Country: DZ (occurrence: DZ)
  Receive Date: 20140402
  Receipt Date: 20140402
  Transmission Date: 20141212
  Serious: Yes (Death)
  Sender: FDA-Public Use
  Company Number: DZ-ROCHE-1372279

PATIENT
  Age: 56 Year
  Sex: Male

DRUGS (4)
  1. METALYSE [Suspect]
     Indication: MYOCARDIAL INFARCTION
     Route: 042
     Dates: start: 20130303, end: 20130303
  2. ENOXAPARIN [Concomitant]
     Route: 042
  3. ASPIRIN [Concomitant]
     Route: 042
  4. CLOPIDOGREL [Concomitant]
     Route: 048

REACTIONS (2)
  - Haematuria [Fatal]
  - Convulsion [Fatal]
